FAERS Safety Report 14783356 (Version 1)
Quarter: 2018Q2

REPORT INFORMATION
  Report Type: Spontaneous
  Country: US (occurrence: US)
  Receive Date: 20180420
  Receipt Date: 20180420
  Transmission Date: 20180711
  Serious: No
  Sender: FDA-Public Use
  Company Number: US-AMGEN-USASP2018050950

PATIENT
  Age: 26 Year
  Sex: Female

DRUGS (5)
  1. MTX [Suspect]
     Active Substance: METHOTREXATE SODIUM
     Indication: PRODUCT USED FOR UNKNOWN INDICATION
     Dosage: 12.5 MG, UNK
     Route: 065
     Dates: start: 201701
  2. ENBREL [Suspect]
     Active Substance: ETANERCEPT
     Dosage: 25 MG, QWK
     Route: 065
     Dates: start: 201801
  3. MTX [Suspect]
     Active Substance: METHOTREXATE SODIUM
     Dosage: 25 MG, QWK
     Route: 065
     Dates: start: 201801
  4. MTX [Suspect]
     Active Substance: METHOTREXATE SODIUM
     Dosage: 7.5 MG, UNK
     Route: 065
  5. ENBREL [Suspect]
     Active Substance: ETANERCEPT
     Indication: PRODUCT USED FOR UNKNOWN INDICATION
     Dosage: UNK
     Route: 065

REACTIONS (9)
  - Drug effect decreased [Unknown]
  - Oral mucosal eruption [Unknown]
  - Synovitis [Unknown]
  - Pain [Unknown]
  - Back pain [Unknown]
  - Gastroenteritis viral [Unknown]
  - Psoriasis [Unknown]
  - Neutrophil count decreased [Unknown]
  - Neck pain [Unknown]

NARRATIVE: CASE EVENT DATE: 201701
